FAERS Safety Report 13576252 (Version 1)
Quarter: 2017Q2

REPORT INFORMATION
  Report Type: Spontaneous
  Country: US (occurrence: US)
  Receive Date: 20170524
  Receipt Date: 20170524
  Transmission Date: 20170830
  Serious: Yes (Life-Threatening, Hospitalization, Other)
  Sender: FDA-Public Use
  Company Number: None

PATIENT
  Age: 60 Year
  Sex: Female
  Weight: 84 kg

DRUGS (3)
  1. HEPARIN [Suspect]
     Active Substance: HEPARIN SODIUM
     Indication: DIALYSIS
     Dosage: 2 DIALYSIS INJECTIONS 2 TIMES EACH DAILYSIS SESSION 3X A WEEK INJECTION
     Dates: start: 201508, end: 201704
  2. XANAX [Concomitant]
     Active Substance: ALPRAZOLAM
  3. CALCIUM ACETATE. [Concomitant]
     Active Substance: CALCIUM ACETATE

REACTIONS (12)
  - Noninfective encephalitis [None]
  - Gastrointestinal haemorrhage [None]
  - Haemorrhage [None]
  - Migraine [None]
  - Contusion [None]
  - Oxygen saturation decreased [None]
  - Cough [None]
  - Anxiety [None]
  - Pharyngeal inflammation [None]
  - Gastrointestinal inflammation [None]
  - Epistaxis [None]
  - Spinal pain [None]

NARRATIVE: CASE EVENT DATE: 201703
